FAERS Safety Report 16562304 (Version 2)
Quarter: 2019Q3

REPORT INFORMATION
  Report Type: Spontaneous
  Country: DE (occurrence: DE)
  Receive Date: 20190711
  Receipt Date: 20190903
  Transmission Date: 20191004
  Serious: Yes (Hospitalization)
  Sender: FDA-Public Use
  Company Number: DE-MYLANLABS-2019M1063940

PATIENT
  Sex: Female

DRUGS (10)
  1. VIGANTOL                           /00318501/ [Concomitant]
     Active Substance: CHOLECALCIFEROL
     Dosage: 1-0-0-0
     Route: 065
  2. L-THYROXIN                         /00068001/ [Concomitant]
     Active Substance: LEVOTHYROXINE
     Dosage: 1-0-0-0
     Route: 065
  3. OMEBETA [Concomitant]
     Dosage: 1-0-0-0
     Route: 065
  4. FERRO SANOL [Concomitant]
     Active Substance: FERROUS GLYCINE SULFATE
     Dosage: 100 MILLIGRAM, QD
     Route: 065
  5. LANTUS [Concomitant]
     Active Substance: INSULIN GLARGINE
     Dosage: 8 INTERNATIONAL UNIT, QD
     Route: 065
  6. CLEXANE [Concomitant]
     Active Substance: ENOXAPARIN SODIUM
     Dosage: 1 DOSAGE FORM, QD
     Route: 065
  7. FOLSAN [Concomitant]
     Active Substance: FOLIC ACID
     Dosage: 1-0-0-0 1 X / WOCHE
     Route: 065
  8. METHOTREXATE. [Suspect]
     Active Substance: METHOTREXATE
     Indication: PRODUCT USED FOR UNKNOWN INDICATION
     Dosage: UNK
     Route: 065
  9. HUMALOG [Concomitant]
     Active Substance: INSULIN LISPRO
     Dosage: 10-8-3-0
     Route: 065
  10. DECORTIN H [Concomitant]
     Active Substance: PREDNISOLONE
     Dosage: 2-0-0-0
     Route: 065

REACTIONS (6)
  - Product administration error [Unknown]
  - Accidental overdose [Unknown]
  - Pancytopenia [Unknown]
  - Inappropriate schedule of product administration [Unknown]
  - Mucosal inflammation [Unknown]
  - Toxicity to various agents [Unknown]
